FAERS Safety Report 5043899-0 (Version None)
Quarter: 2006Q3

REPORT INFORMATION
  Report Type: 
  Country: None (occurrence: None)
  Receive Date: 20060706
  Receipt Date: 20060428
  Transmission Date: 20061208
  Serious: Yes (Other)
  Sender: FDA-Public Use
  Company Number: PHBS2006JP06384

PATIENT
  Age: 67 Year
  Sex: Male

DRUGS (5)
  1. DIOVAN [Suspect]
     Indication: HYPERTENSION
     Dosage: 40 MG, QD
     Route: 048
     Dates: start: 20030526, end: 20060424
  2. NEUFAN [Concomitant]
     Dosage: 100 MG, UNK
     Route: 048
     Dates: start: 19970519
  3. HACHIMIGAN [Concomitant]
     Dosage: 7.5 G, UNK
     Route: 048
     Dates: start: 20000519
  4. BUP-4 [Concomitant]
     Dosage: 20 MG, UNK
     Route: 048
     Dates: start: 20030621
  5. ALOSENN [Concomitant]
     Dosage: 0.5 G, UNK
     Route: 048
     Dates: start: 20021115

REACTIONS (4)
  - CHEST X-RAY ABNORMAL [None]
  - DYSPNOEA EXERTIONAL [None]
  - INTERSTITIAL LUNG DISEASE [None]
  - PRODUCTIVE COUGH [None]
